FAERS Safety Report 21077015 (Version 3)
Quarter: 2023Q1

REPORT INFORMATION
  Report Type: Report from Study
  Country: US (occurrence: US)
  Receive Date: 20220713
  Receipt Date: 20230306
  Transmission Date: 20230418
  Serious: Yes (Other)
  Sender: FDA-Public Use
  Company Number: US-TAKEDA-US202033212

PATIENT
  Sex: Female

DRUGS (7)
  1. HUMAN IMMUNOGLOBULIN G [Suspect]
     Active Substance: HUMAN IMMUNOGLOBULIN G
     Indication: Hypogammaglobulinaemia
     Dosage: UNK
     Route: 065
  2. HUMAN IMMUNOGLOBULIN G [Suspect]
     Active Substance: HUMAN IMMUNOGLOBULIN G
     Indication: Hypogammaglobulinaemia
     Dosage: UNK
     Route: 065
  3. HUMAN IMMUNOGLOBULIN G [Suspect]
     Active Substance: HUMAN IMMUNOGLOBULIN G
     Indication: Primary immunodeficiency syndrome
  4. HUMAN IMMUNOGLOBULIN G [Suspect]
     Active Substance: HUMAN IMMUNOGLOBULIN G
     Indication: Primary immunodeficiency syndrome
  5. GAMMAGARD LIQUID [Suspect]
     Active Substance: HUMAN IMMUNOGLOBULIN G
     Indication: Hypogammaglobulinaemia
     Dosage: UNK
     Route: 065
  6. GAMMAGARD LIQUID [Suspect]
     Active Substance: HUMAN IMMUNOGLOBULIN G
     Indication: Primary immunodeficiency syndrome
     Dosage: 35 GRAM, Q4WEEKS
     Route: 042
  7. COVID-19 VACCINE NOS [Suspect]
     Active Substance: COVID-19 VACCINE NOS
     Indication: COVID-19 immunisation
     Dosage: UNK
     Route: 065

REACTIONS (24)
  - Gastroenteritis salmonella [Unknown]
  - Exophthalmos [Unknown]
  - Hepatic fibrosis [Unknown]
  - Infusion site swelling [Unknown]
  - Infusion site erythema [Unknown]
  - Chills [Unknown]
  - Pyrexia [Unknown]
  - Vaginal infection [Unknown]
  - Bronchitis [Recovered/Resolved]
  - Drainage [Unknown]
  - Cough [Unknown]
  - COVID-19 [Unknown]
  - Chest discomfort [Unknown]
  - Chest pain [Unknown]
  - Liver function test increased [Unknown]
  - Headache [Unknown]
  - Eye disorder [Unknown]
  - Gastrointestinal disorder [Recovered/Resolved]
  - Thyroid disorder [Unknown]
  - Adrenal disorder [Unknown]
  - Diarrhoea [Unknown]
  - COVID-19 immunisation [Unknown]
  - Malaise [Unknown]
  - Oropharyngeal pain [Recovered/Resolved]
